FAERS Safety Report 8553626-8 (Version None)
Quarter: 2012Q3

REPORT INFORMATION
  Report Type: 
  Country: None (occurrence: None)
  Receive Date: 20120731
  Receipt Date: 20120725
  Transmission Date: 20120928
  Serious: Yes (Hospitalization)
  Sender: FDA-Public Use
  Company Number: PHHY2012US064151

PATIENT
  Age: 72 Year
  Sex: Male

DRUGS (1)
  1. AMIODARONE HCL [Suspect]
     Indication: ATRIAL FIBRILLATION
     Dosage: 200 MG, UNK

REACTIONS (3)
  - PULMONARY FUNCTION TEST DECREASED [None]
  - MUCOSAL PIGMENTATION [None]
  - BRONCHOSPASM [None]
